FAERS Safety Report 5704167-4 (Version None)
Quarter: 2008Q2

REPORT INFORMATION
  Report Type: 
  Country: None (occurrence: None)
  Receive Date: 20080409
  Receipt Date: 20080403
  Transmission Date: 20081010
  Serious: Yes (Other)
  Sender: FDA-Public Use
  Company Number: 08042454

PATIENT
  Age: 40 Year
  Sex: Male

DRUGS (2)
  1. CARBAMAZEPINE [Suspect]
     Indication: EPILEPSY
     Dosage: ORAL
     Route: 048
  2. FLOXACILLIN SODIUM [Suspect]
     Indication: LACERATION
     Dosage: ORAL
     Route: 048

REACTIONS (9)
  - ANGLE CLOSURE GLAUCOMA [None]
  - CHOROIDAL EFFUSION [None]
  - CORNEAL OEDEMA [None]
  - FALL [None]
  - FLAT ANTERIOR CHAMBER OF EYE [None]
  - HEADACHE [None]
  - PUPIL FIXED [None]
  - SKIN LACERATION [None]
  - VISION BLURRED [None]
